FAERS Safety Report 6454136-4 (Version None)
Quarter: 2009Q4

REPORT INFORMATION
  Report Type: 
  Country: None (occurrence: None)
  Receive Date: 20091124
  Receipt Date: 20091110
  Transmission Date: 20100525
  Serious: Yes (Other)
  Sender: FDA-Public Use
  Company Number: US-MYLANLABS-2009S1019626

PATIENT
  Age: 31 Year
  Sex: Female
  Weight: 130 kg

DRUGS (7)
  1. RISPERIDONE [Suspect]
  2. RISPERIDONE [Suspect]
  3. SEROQUEL [Suspect]
  4. CLONAZEPAM [Concomitant]
  5. TOPIRAMATE [Concomitant]
  6. TOPIRAMATE [Concomitant]
  7. VENLAFAXINE PROLONGED RELEASE CAPSULES [Concomitant]

REACTIONS (3)
  - ELECTROCARDIOGRAM QT PROLONGED [None]
  - OVERDOSE [None]
  - POTENTIATING DRUG INTERACTION [None]
